FAERS Safety Report 14815097 (Version 1)
Quarter: 2018Q2

REPORT INFORMATION
  Report Type: Other
  Country: BR (occurrence: BR)
  Receive Date: 20180426
  Receipt Date: 20180426
  Transmission Date: 20180711
  Serious: Yes (Hospitalization, Other)
  Sender: FDA-Public Use
  Company Number: BR-ACTELION-A-CH2018-171069

PATIENT
  Age: 41 Year
  Sex: Female

DRUGS (4)
  1. BOSENTAN. [Suspect]
     Active Substance: BOSENTAN
     Indication: PULMONARY ARTERIAL HYPERTENSION
     Dosage: 62.5 MG, BID
     Route: 048
     Dates: start: 201303
  2. BOSENTAN. [Suspect]
     Active Substance: BOSENTAN
     Dosage: 125 MG, BID
     Route: 048
  3. SILDENAFIL. [Concomitant]
     Active Substance: SILDENAFIL
     Indication: PULMONARY ARTERIAL HYPERTENSION
  4. WARFARIN [Concomitant]
     Active Substance: WARFARIN
     Indication: PULMONARY ARTERIAL HYPERTENSION

REACTIONS (17)
  - Aspartate aminotransferase increased [Recovered/Resolved]
  - Abdominal distension [Unknown]
  - Blood alkaline phosphatase increased [Recovered/Resolved]
  - Blood bilirubin increased [Recovered/Resolved]
  - Hepatocellular injury [Unknown]
  - Nausea [Unknown]
  - Biopsy liver [Unknown]
  - Hepatic cirrhosis [Unknown]
  - Gamma-glutamyltransferase increased [Recovered/Resolved]
  - Autoimmune hepatitis [Recovered/Resolved]
  - Chronic hepatitis [Unknown]
  - Alanine aminotransferase increased [Recovered/Resolved]
  - Oxygen saturation decreased [Unknown]
  - Lymphadenopathy [Unknown]
  - Systolic dysfunction [Recovering/Resolving]
  - Jaundice [Not Recovered/Not Resolved]
  - Drug effect incomplete [Unknown]

NARRATIVE: CASE EVENT DATE: 201404
